FAERS Safety Report 9189514 (Version 1)
Quarter: 2013Q1

REPORT INFORMATION
  Report Type: Spontaneous
  Country: US (occurrence: None)
  Receive Date: 20130322
  Receipt Date: 20130322
  Transmission Date: 20140127
  Serious: Yes (Other)
  Sender: FDA-Public Use
  Company Number: None

PATIENT
  Sex: Female

DRUGS (2)
  1. LEVETIRACETAM [Suspect]
     Indication: EPILEPSY
  2. KEPPRA [Suspect]

REACTIONS (7)
  - Product substitution issue [None]
  - Convulsion [None]
  - Somnolence [None]
  - Headache [None]
  - Product formulation issue [None]
  - Activities of daily living impaired [None]
  - Quality of life decreased [None]
